FAERS Safety Report 23481438 (Version 1)
Quarter: 2024Q1

REPORT INFORMATION
  Report Type: Spontaneous
  Country: CN (occurrence: CN)
  Receive Date: 20240205
  Receipt Date: 20240205
  Transmission Date: 20240410
  Serious: Yes (Other)
  Sender: FDA-Public Use
  Company Number: None

PATIENT
  Age: 69 Year
  Sex: Female
  Weight: 63 kg

DRUGS (7)
  1. CYCLOPHOSPHAMIDE [Suspect]
     Active Substance: CYCLOPHOSPHAMIDE
     Indication: Diffuse large B-cell lymphoma
     Dosage: 0.6 G, ONE TIME IN ONE DAY, D1, DILUTED WITH 30 ML OF 0.9% SODIUM CHLORIDE
     Route: 041
     Dates: start: 20231209, end: 20231209
  2. SODIUM CHLORIDE [Suspect]
     Active Substance: SODIUM CHLORIDE
     Indication: Medication dilution
     Dosage: 450 + 90 ML, ONE TIME IN ONE DAY, D0, STRENGTH: 0.9%, USED TO DILUTE RITUXIMAB 600 MG
     Route: 041
     Dates: start: 20231208, end: 20231208
  3. SODIUM CHLORIDE [Suspect]
     Active Substance: SODIUM CHLORIDE
     Dosage: 30 ML, ONE TIME IN ONE DAY, D1, STRENGTH: 0.9%, USED TO DILUTE CYCLOPHOSPHAMIDE 0.6 G
     Route: 041
     Dates: start: 20231209, end: 20231209
  4. SODIUM CHLORIDE [Suspect]
     Active Substance: SODIUM CHLORIDE
     Dosage: 30 ML, ONE TIME IN ONE DAY, D1, STRENGTH: 0.9%, USED TO DILUTE VINDESINE SULFATE 2 MG
     Route: 041
     Dates: start: 20231209, end: 20231209
  5. RITUXIMAB [Suspect]
     Active Substance: RITUXIMAB
     Indication: Diffuse large B-cell lymphoma
     Dosage: 600 MG, ONE TIME IN ONE DAY, D0, DILUTED WITH 450 + 90 ML OF 0.9% SODIUM CHLORIDE
     Route: 041
     Dates: start: 20231208, end: 20231208
  6. EPIRUBICIN HYDROCHLORIDE [Suspect]
     Active Substance: EPIRUBICIN HYDROCHLORIDE
     Indication: Diffuse large B-cell lymphoma
     Dosage: 60 MG, ONE TIME IN ONE DAY, D1
     Route: 041
     Dates: start: 20231209, end: 20231209
  7. VINDESINE SULFATE [Suspect]
     Active Substance: VINDESINE SULFATE
     Indication: Diffuse large B-cell lymphoma
     Dosage: 2 MG, ONE TIME IN ONE DAY, D1, DILUTED WITH 30 ML OF 0.9% SODIUM CHLORIDE
     Route: 041
     Dates: start: 20231209, end: 20231209

REACTIONS (1)
  - Myelosuppression [Recovered/Resolved]

NARRATIVE: CASE EVENT DATE: 20231214
